FAERS Safety Report 9496346 (Version 1)
Quarter: 2013Q3

REPORT INFORMATION
  Report Type: Spontaneous
  Country: RU (occurrence: RU)
  Receive Date: 20130904
  Receipt Date: 20130904
  Transmission Date: 20140515
  Serious: Yes (Other)
  Sender: FDA-Public Use
  Company Number: RU-JNJFOC-20130814727

PATIENT
  Sex: 0

DRUGS (1)
  1. TOPIRAMAX [Suspect]
     Indication: EPILEPSY
     Route: 048

REACTIONS (1)
  - Sleep phase rhythm disturbance [Unknown]
